FAERS Safety Report 5448626-0 (Version None)
Quarter: 2007Q3

REPORT INFORMATION
  Report Type: 
  Country: None (occurrence: None)
  Receive Date: 20070906
  Receipt Date: 20070906
  Transmission Date: 20080115
  Serious: No
  Sender: FDA-Public Use
  Company Number: None

PATIENT
  Age: 70 Year
  Sex: Male

DRUGS (2)
  1. ASPIRIN [Suspect]
     Indication: TRANSIENT ISCHAEMIC ATTACK
     Dosage: PO
     Route: 048
     Dates: start: 20070802, end: 20070827
  2. DIPYRIDAMOLE [Suspect]
     Dosage: 25/200MG BID PO
     Route: 048
     Dates: start: 20070802, end: 20070827

REACTIONS (2)
  - DYSPEPSIA [None]
  - HEADACHE [None]
